FAERS Safety Report 25370778 (Version 1)
Quarter: 2025Q2

REPORT INFORMATION
  Report Type: Spontaneous
  Country: JP (occurrence: JP)
  Receive Date: 20250528
  Receipt Date: 20250528
  Transmission Date: 20250717
  Serious: Yes (Other)
  Sender: JAZZ
  Company Number: JP-JAZZ PHARMACEUTICALS-2025-JP-013549

PATIENT
  Age: 66 Year

DRUGS (1)
  1. VYXEOS [Suspect]
     Active Substance: CYTARABINE\DAUNORUBICIN
     Indication: Acute myeloid leukaemia
     Dates: start: 20241209, end: 20250129

REACTIONS (5)
  - Febrile neutropenia [Recovered/Resolved]
  - Hepatic function abnormal [Recovered/Resolved]
  - Lung neoplasm malignant [Unknown]
  - Myelosuppression [Recovered/Resolved]
  - Cytarabine syndrome [Recovering/Resolving]

NARRATIVE: CASE EVENT DATE: 20241209
